FAERS Safety Report 18121630 (Version 1)
Quarter: 2020Q3

REPORT INFORMATION
  Report Type: Spontaneous
  Country: US (occurrence: US)
  Receive Date: 20200806
  Receipt Date: 20200806
  Transmission Date: 20201103
  Serious: Yes (Hospitalization)
  Sender: FDA-Public Use
  Company Number: US-IGSA-SR10009446

PATIENT
  Age: 32 Year
  Sex: Male

DRUGS (1)
  1. HUMAN NORMAL IMMUNOGLOBULIN (IV) [Suspect]
     Active Substance: HUMAN IMMUNOGLOBULIN G
     Indication: GUILLAIN-BARRE SYNDROME
     Dosage: 400 MG/KG, QD
     Route: 042

REACTIONS (4)
  - Muscular weakness [Recovered/Resolved]
  - Ocular icterus [Recovered/Resolved]
  - Haemolytic anaemia [Recovered/Resolved]
  - Fall [Recovered/Resolved]
